FAERS Safety Report 9445218 (Version 2)
Quarter: 2013Q3

REPORT INFORMATION
  Report Type: Spontaneous
  Country: BR (occurrence: BR)
  Receive Date: 20130807
  Receipt Date: 20130822
  Transmission Date: 20140515
  Serious: Yes (Hospitalization)
  Sender: FDA-Public Use
  Company Number: BR-GLAXOSMITHKLINE-B0908653A

PATIENT
  Age: 48 Year
  Sex: Female
  Weight: 78 kg

DRUGS (5)
  1. LAMICTAL [Suspect]
     Indication: EPILEPSY
     Dosage: 50MG PER DAY
     Route: 048
     Dates: start: 20130516
  2. LOSARTAN [Concomitant]
  3. PHENYTOIN [Concomitant]
     Dosage: 1TAB THREE TIMES PER DAY
     Route: 048
     Dates: start: 201206
  4. PHENOBARBITAL [Concomitant]
     Dosage: 1TAB PER DAY
     Route: 048
     Dates: start: 201206
  5. SERTRALINE [Concomitant]
     Dosage: 2TAB PER DAY
     Route: 048
     Dates: start: 201206

REACTIONS (3)
  - Convulsion [Unknown]
  - Pruritus [Recovered/Resolved]
  - Insomnia [Unknown]
